FAERS Safety Report 10027524 (Version 1)
Quarter: 2014Q1

REPORT INFORMATION
  Report Type: Spontaneous
  Country: US (occurrence: US)
  Receive Date: 20140321
  Receipt Date: 20140321
  Transmission Date: 20141002
  Serious: No
  Sender: FDA-Public Use
  Company Number: US-PFIZER INC-2014081051

PATIENT
  Age: 52 Year
  Sex: Female

DRUGS (7)
  1. LYRICA [Suspect]
     Indication: LUMBAR RADICULOPATHY
     Dosage: 75 MG, 2X/DAY
     Route: 048
     Dates: start: 20140218
  2. LYRICA [Suspect]
     Indication: POST HERPETIC NEURALGIA
  3. LYRICA [Suspect]
     Indication: NEUROPATHY PERIPHERAL
  4. CELEXA [Concomitant]
     Dosage: UNK
  5. NASONEX [Concomitant]
     Dosage: UNK
  6. LISINOPRIL [Concomitant]
     Dosage: UNK
  7. CLARITIN [Concomitant]
     Dosage: UNK

REACTIONS (1)
  - Malaise [Unknown]
